FAERS Safety Report 4904330-6 (Version None)
Quarter: 2006Q1

REPORT INFORMATION
  Report Type: 
  Country: None (occurrence: None)
  Receive Date: 20060208
  Receipt Date: 20050823
  Transmission Date: 20060701
  Serious: Yes (Hospitalization, Other)
  Sender: FDA-Public Use
  Company Number: US-GLAXOSMITHKLINE-A0571530A

PATIENT
  Age: 82 Year
  Sex: Female

DRUGS (3)
  1. PAXIL [Suspect]
     Indication: BIPOLAR DISORDER
     Dosage: 10MG PER DAY
     Route: 048
     Dates: end: 20050801
  2. WELLBUTRIN [Concomitant]
     Indication: DRUG USE FOR UNKNOWN INDICATION
     Route: 065
     Dates: start: 20050801
  3. HALDOL [Concomitant]
     Indication: DRUG USE FOR UNKNOWN INDICATION
     Route: 065
     Dates: start: 20050801

REACTIONS (1)
  - HYPONATRAEMIA [None]
